FAERS Safety Report 11348917 (Version 2)
Quarter: 2015Q3

REPORT INFORMATION
  Report Type: Spontaneous
  Country: JP (occurrence: JP)
  Receive Date: 20150807
  Receipt Date: 20150813
  Transmission Date: 20151125
  Serious: Yes (Death)
  Sender: FDA-Public Use
  Company Number: JP-ROCHE-1618054

PATIENT
  Age: 70 Year
  Sex: Female

DRUGS (1)
  1. XOLAIR [Suspect]
     Active Substance: OMALIZUMAB
     Indication: ASTHMA
     Route: 058
     Dates: start: 20100720

REACTIONS (2)
  - Pseudomonas infection [Fatal]
  - Fungal infection [Fatal]
